FAERS Safety Report 4971211-1 (Version None)
Quarter: 2006Q1

REPORT INFORMATION
  Report Type: 
  Country: None (occurrence: None)
  Receive Date: 20060216
  Receipt Date: 20040423
  Transmission Date: 20060701
  Serious: Yes (Hospitalization)
  Sender: FDA-Public Use
  Company Number: 2002IM000333

PATIENT
  Age: 54 Year
  Sex: Female
  Weight: 115.6672 kg

DRUGS (11)
  1. INTERFERON GAMMA-1B [Suspect]
     Indication: OVARIAN CANCER
     Dosage: 100 UG, TIW, SUBCUTANEOUS
     Route: 058
     Dates: start: 20020508, end: 20020515
  2. TOPRAL [Concomitant]
  3. NORVASC [Concomitant]
  4. ALTACE [Concomitant]
  5. ASPIRIN [Concomitant]
  6. AUGMENTIN '125' [Concomitant]
  7. MULTIVITAMIN [Concomitant]
  8. ACETAMINOPHEN [Concomitant]
  9. CARBOPLATIN [Concomitant]
  10. PACLITAXEL [Concomitant]
  11. TYLENOL [Concomitant]

REACTIONS (1)
  - LIVER FUNCTION TEST ABNORMAL [None]
